FAERS Safety Report 4322000-2 (Version None)
Quarter: 2004Q1

REPORT INFORMATION
  Report Type: 
  Country: None (occurrence: None)
  Receive Date: 20040323
  Receipt Date: 20040312
  Transmission Date: 20041129
  Serious: Yes (Hospitalization, Other)
  Sender: FDA-Public Use
  Company Number: PHRM2004FR01192

PATIENT
  Age: 70 Year
  Sex: Female

DRUGS (8)
  1. LESCOL [Suspect]
     Dosage: 80 MG, DAILY
     Route: 048
     Dates: end: 20040117
  2. CELEBREX [Suspect]
     Indication: WRIST FRACTURE
     Dosage: 200 MG, QD
     Route: 048
     Dates: start: 20040112, end: 20040117
  3. DAFALGAN [Suspect]
     Dosage: 1 G, TID
     Route: 048
     Dates: end: 20040117
  4. BROMAZEPAM [Suspect]
     Dosage: .25 DF, TID
     Route: 048
     Dates: end: 20040117
  5. MOPRAL [Suspect]
     Indication: DIAPHRAGMATIC HERNIA
     Dosage: 20 MG, QD
     Route: 048
     Dates: end: 20040117
  6. PADERYL TABLETS [Suspect]
     Dosage: 1 DF, QD
     Route: 048
     Dates: end: 20040117
  7. DAFALGAN CODEINE [Concomitant]
     Dosage: 1 DF, QD
     Route: 048
  8. STILNOX [Concomitant]
     Dosage: 1 DF, QD

REACTIONS (22)
  - ABDOMINAL PAIN [None]
  - ABDOMINAL RIGIDITY [None]
  - ANAEMIA [None]
  - ASTHENIA [None]
  - BLOOD PRESSURE SYSTOLIC INCREASED [None]
  - C-REACTIVE PROTEIN INCREASED [None]
  - CONSTIPATION [None]
  - DIVERTICULUM INTESTINAL HAEMORRHAGIC [None]
  - GASTROINTESTINAL NECROSIS [None]
  - HIATUS HERNIA [None]
  - INTESTINAL ISCHAEMIA [None]
  - INTESTINAL RESECTION [None]
  - LEUKOCYTOSIS [None]
  - MESENTERIC OCCLUSION [None]
  - NAUSEA [None]
  - PALLOR [None]
  - PLATELET COUNT INCREASED [None]
  - PYREXIA [None]
  - RECTAL HAEMORRHAGE [None]
  - ULCER [None]
  - VOMITING [None]
  - WRIST FRACTURE [None]
